FAERS Safety Report 15465690 (Version 1)
Quarter: 2018Q4

REPORT INFORMATION
  Report Type: Spontaneous
  Country: VN (occurrence: VN)
  Receive Date: 20181004
  Receipt Date: 20181004
  Transmission Date: 20190204
  Serious: Yes (Other)
  Sender: FDA-Public Use
  Company Number: VN-B.I. PHARMACEUTICALS,INC./RIDGEFIELD-2018-BI-048797

PATIENT
  Age: 60 Year
  Sex: Male

DRUGS (2)
  1. GILOTRIF [Suspect]
     Active Substance: AFATINIB
     Indication: NON-SMALL CELL LUNG CANCER
     Route: 048
     Dates: start: 20180715, end: 20180815
  2. GILOTRIF [Suspect]
     Active Substance: AFATINIB
     Indication: EGFR GENE MUTATION
     Route: 048
     Dates: start: 20180815, end: 20180915

REACTIONS (2)
  - Cardiac failure [Recovered/Resolved]
  - Off label use [Unknown]
